FAERS Safety Report 6567669-7 (Version None)
Quarter: 2010Q1

REPORT INFORMATION
  Report Type: 
  Country: None (occurrence: None)
  Receive Date: 20100203
  Receipt Date: 20100127
  Transmission Date: 20100710
  Serious: Yes (Hospitalization)
  Sender: FDA-Public Use
  Company Number: US-BIOGENIDEC-2010BI002344

PATIENT
  Sex: Female

DRUGS (11)
  1. TYSABRI [Suspect]
     Indication: MULTIPLE SCLEROSIS
     Route: 042
     Dates: start: 20080213
  2. BACLOFEN [Concomitant]
     Route: 048
  3. DIOVAN [Concomitant]
     Route: 048
  4. PLAVIX [Concomitant]
     Route: 048
  5. PROZAC [Concomitant]
     Route: 048
  6. ZANAFLEX [Concomitant]
     Route: 048
  7. ZOCOR [Concomitant]
     Route: 048
  8. METFORMIN HCL [Concomitant]
     Route: 048
  9. ASPIRIN [Concomitant]
     Route: 048
  10. FORTICAL [Concomitant]
  11. PRILOSEC [Concomitant]
     Route: 048

REACTIONS (6)
  - BACTERAEMIA [None]
  - CALCULUS URETERIC [None]
  - CLOSTRIDIAL INFECTION [None]
  - OSTEONECROSIS [None]
  - RENAL FAILURE ACUTE [None]
  - URINARY TRACT INFECTION BACTERIAL [None]
